FAERS Safety Report 7774661-3 (Version None)
Quarter: 2011Q3

REPORT INFORMATION
  Report Type: 
  Country: None (occurrence: None)
  Receive Date: 20110923
  Receipt Date: 20110921
  Transmission Date: 20111222
  Serious: Yes (Other)
  Sender: FDA-Public Use
  Company Number: IE-PFIZER INC-2011223904

PATIENT
  Age: 55 Year
  Sex: Female

DRUGS (3)
  1. VARENICLINE TARTRATE [Suspect]
     Dosage: 1 MG, 2X/DAY
  2. FOSAMAX [Concomitant]
     Indication: BONE DENSITY DECREASED
  3. VARENICLINE TARTRATE [Suspect]
     Indication: SMOKING CESSATION THERAPY
     Dosage: 0.5 MG, 2X/DAY

REACTIONS (9)
  - PSYCHOTIC DISORDER [None]
  - AGGRESSION [None]
  - INSOMNIA [None]
  - OBSESSIVE THOUGHTS [None]
  - AGITATION [None]
  - DELUSION [None]
  - SCREAMING [None]
  - PARANOIA [None]
  - IRRITABILITY [None]
